FAERS Safety Report 8246603-8 (Version None)
Quarter: 2012Q1

REPORT INFORMATION
  Report Type: 
  Country: None (occurrence: None)
  Receive Date: 20120330
  Receipt Date: 20120328
  Transmission Date: 20120608
  Serious: Yes (Other)
  Sender: FDA-Public Use
  Company Number: US-PFIZER INC-2012079723

PATIENT
  Sex: Female
  Weight: 142 kg

DRUGS (3)
  1. DIAZEPAM [Concomitant]
     Indication: MUSCULOSKELETAL DISCOMFORT
     Dosage: 10 MG, AS NEEDED
     Dates: start: 20040101
  2. CHANTIX [Suspect]
     Indication: SMOKING CESSATION THERAPY
     Dosage: UNK
  3. MOBIC [Concomitant]
     Indication: INTERVERTEBRAL DISC PROTRUSION
     Dosage: 10 MG, 2X/DAY
     Dates: start: 20040101

REACTIONS (4)
  - PNEUMONIA [None]
  - EMPHYSEMA [None]
  - HYPERSENSITIVITY [None]
  - RETCHING [None]
